FAERS Safety Report 6701668-7 (Version None)
Quarter: 2010Q2

REPORT INFORMATION
  Report Type: 
  Country: None (occurrence: None)
  Receive Date: 20100429
  Receipt Date: 20100419
  Transmission Date: 20101027
  Serious: Yes (Other)
  Sender: FDA-Public Use
  Company Number: US-SANOFI-AVENTIS-2010SA023458

PATIENT
  Sex: Female

DRUGS (1)
  1. AMBIEN [Suspect]
     Route: 048
     Dates: start: 20080101

REACTIONS (3)
  - DIPLOPIA [None]
  - ROAD TRAFFIC ACCIDENT [None]
  - STRABISMUS [None]
